FAERS Safety Report 20976701 (Version 1)
Quarter: 2022Q2

REPORT INFORMATION
  Report Type: Spontaneous
  Country: US (occurrence: US)
  Receive Date: 20220617
  Receipt Date: 20220617
  Transmission Date: 20220721
  Serious: No
  Sender: FDA-Public Use
  Company Number: US-PFIZER INC-202200838519

PATIENT
  Age: 62 Year
  Sex: Female
  Weight: 51.71 kg

DRUGS (1)
  1. PAXLOVID [Suspect]
     Active Substance: NIRMATRELVIR\RITONAVIR
     Indication: COVID-19 treatment
     Dosage: UNK
     Dates: start: 20220609, end: 20220610

REACTIONS (6)
  - Poor quality sleep [Recovering/Resolving]
  - Dysphonia [Recovering/Resolving]
  - Hypersensitivity [Unknown]
  - Poor quality product administered [Unknown]
  - Product colour issue [Unknown]
  - Incorrect dose administered [Unknown]

NARRATIVE: CASE EVENT DATE: 20220609
